FAERS Safety Report 15863454 (Version 2)
Quarter: 2019Q1

REPORT INFORMATION
  Report Type: Spontaneous
  Country: US (occurrence: US)
  Receive Date: 20190124
  Receipt Date: 20190128
  Transmission Date: 20190417
  Serious: Yes (Other)
  Sender: FDA-Public Use
  Company Number: US-ALLERGAN-1902904US

PATIENT
  Age: 66 Year
  Sex: Male

DRUGS (2)
  1. OZURDEX [Suspect]
     Active Substance: DEXAMETHASONE
     Indication: DIABETIC RETINAL OEDEMA
     Dosage: 0.7 MG, SINGLE
     Route: 031
     Dates: start: 20171121, end: 20171121
  2. POVIDONE-IODINE. [Concomitant]
     Active Substance: POVIDONE-IODINE
     Indication: PROPHYLAXIS

REACTIONS (4)
  - Headache [Unknown]
  - Blindness [Recovering/Resolving]
  - Endophthalmitis [Recovering/Resolving]
  - Recalled product administered [Unknown]

NARRATIVE: CASE EVENT DATE: 20171121
